FAERS Safety Report 9981152 (Version 1)
Quarter: 2014Q1

REPORT INFORMATION
  Report Type: Spontaneous
  Country: US (occurrence: None)
  Receive Date: 20140306
  Receipt Date: 20140306
  Transmission Date: 20141002
  Serious: Yes (Hospitalization)
  Sender: FDA-Public Use
  Company Number: None

PATIENT
  Age: 56 Year
  Sex: Female

DRUGS (11)
  1. TRICOR [Suspect]
     Indication: BLOOD TRIGLYCERIDES INCREASED
     Route: 048
     Dates: start: 20131025, end: 20131106
  2. TRICOR [Suspect]
     Indication: BLOOD CHOLESTEROL INCREASED
     Route: 048
     Dates: start: 20131025, end: 20131106
  3. EFFEXOR [Concomitant]
  4. FLEXERIL [Concomitant]
  5. HYDROZYINE [Concomitant]
  6. ALLEGRA [Concomitant]
  7. ADVIL [Concomitant]
  8. ZYRETC [Concomitant]
  9. MIRALAZ [Concomitant]
  10. MUXINES [Concomitant]
  11. MULTI VITAMINS [Concomitant]

REACTIONS (6)
  - Pancreatic enzymes increased [None]
  - Malaise [None]
  - Hepatic enzyme increased [None]
  - Bladder disorder [None]
  - Abdominal pain upper [None]
  - Rash [None]
